FAERS Safety Report 7404045-9 (Version None)
Quarter: 2011Q2

REPORT INFORMATION
  Report Type: 
  Country: None (occurrence: None)
  Receive Date: 20110408
  Receipt Date: 20110314
  Transmission Date: 20111010
  Serious: Yes (Other)
  Sender: FDA-Public Use
  Company Number: US-BAYER-2011-022176

PATIENT
  Age: 50 Year
  Sex: Female
  Weight: 63.492 kg

DRUGS (3)
  1. YAZ [Suspect]
     Indication: CONTRACEPTION
     Dosage: UNK
     Dates: start: 20060721, end: 20070801
  2. YAZ [Suspect]
     Indication: MENSTRUAL DISORDER
  3. DIFLUCAN [Concomitant]
     Dosage: 150 MG, UNK
     Dates: start: 20070821

REACTIONS (4)
  - DEEP VEIN THROMBOSIS [None]
  - INJURY [None]
  - EMOTIONAL DISTRESS [None]
  - PAIN [None]
